FAERS Safety Report 8768183 (Version 1)
Quarter: 2012Q4

REPORT INFORMATION
  Report Type: 
  Country: US (occurrence: US)
  Receive Date: 20120904
  Receipt Date: 20120904
  Transmission Date: 20130627
  Serious: Yes (Other)
  Sender: FDA-Public Use
  Company Number: US-ASTRAZENECA-2012SE64760

PATIENT

DRUGS (1)
  1. BRILINTA [Suspect]
     Indication: MYOCARDIAL INFARCTION
     Route: 048

REACTIONS (1)
  - Thrombosis in device [Unknown]
